FAERS Safety Report 7525200-3 (Version None)
Quarter: 2011Q2

REPORT INFORMATION
  Report Type: 
  Country: None (occurrence: None)
  Receive Date: 20110602
  Receipt Date: 20110602
  Transmission Date: 20111010
  Serious: Yes (Hospitalization)
  Sender: FDA-Public Use
  Company Number: None

PATIENT
  Sex: Female
  Weight: 56.3 kg

DRUGS (29)
  1. ZOFRAN [Concomitant]
  2. FISH OIL [Concomitant]
  3. CREON [Concomitant]
  4. COLACE [Concomitant]
  5. PAXIL [Concomitant]
  6. ZOFRAN [Concomitant]
  7. OXYCONTIN [Concomitant]
  8. CARAFATE [Concomitant]
  9. ZYRTEC [Concomitant]
  10. CREON [Concomitant]
  11. NEXIUM [Concomitant]
  12. ASPIRIN [Concomitant]
  13. VITAMIN D [Concomitant]
  14. LOPRESSOR [Concomitant]
  15. VITAMIN B-12 [Concomitant]
  16. ERLOTINIB HYDROCHLORIDE [Suspect]
     Indication: PANCREATIC CARCINOMA
     Dosage: 100MG DAILY ORAL
     Route: 048
     Dates: start: 20101217, end: 20110206
  17. CRESTOR [Concomitant]
  18. MULTI-VITAMIN [Concomitant]
  19. MIRTAZAPINE [Concomitant]
  20. REGLAN [Concomitant]
  21. SORAFENIB 400MG [Suspect]
     Indication: PANCREATIC CARCINOMA
     Dosage: 400MG DAILY ORAL
     Route: 048
     Dates: start: 20101217, end: 20110206
  22. LAMIR [Concomitant]
  23. OXYCODONE HCL [Concomitant]
  24. OXYCONTIN [Concomitant]
  25. OXYCODONE HCL [Concomitant]
  26. CARAFATE [Concomitant]
  27. OXYCODONE HCL [Concomitant]
  28. PREVACID [Concomitant]
  29. REGLAN [Concomitant]

REACTIONS (4)
  - ABDOMINAL PAIN UPPER [None]
  - PLEURAL EFFUSION [None]
  - METASTASES TO LUNG [None]
  - PNEUMONIA [None]
